FAERS Safety Report 9143498 (Version 2)
Quarter: 2013Q2

REPORT INFORMATION
  Report Type: Spontaneous
  Country: US (occurrence: US)
  Receive Date: 20130306
  Receipt Date: 20130409
  Transmission Date: 20140414
  Serious: Yes (Hospitalization)
  Sender: FDA-Public Use
  Company Number: US-PFIZER INC-2010018410

PATIENT
  Age: 63 Year
  Sex: Female

DRUGS (12)
  1. HYDROCHLOROTHIAZIDE [Suspect]
     Indication: HYPERTENSION
     Dosage: 12.5 MG, 1X/DAY
     Route: 048
     Dates: start: 2005, end: 200801
  2. HYDROCHLOROTHIAZIDE [Suspect]
     Dosage: 12.5 MG, 1X/DAY
     Route: 048
     Dates: start: 2008
  3. HYDROCHLOROTHIAZIDE [Suspect]
     Dosage: 25 MG, 2X/DAY
     Route: 048
     Dates: start: 20130327
  4. BENICAR HCT [Suspect]
     Indication: HYPERTENSION
     Dosage: 40/12.5 MG, 1X/DAY
     Route: 048
     Dates: start: 2002, end: 2005
  5. BENICAR [Suspect]
     Indication: HYPERTENSION
     Dosage: 40 MG, 1X/DAY
     Route: 048
     Dates: start: 200209, end: 200801
  6. BENICAR [Suspect]
     Dosage: 20 MG, 1X/DAY
     Route: 048
     Dates: start: 200801, end: 2010
  7. BENICAR [Suspect]
     Dosage: 40 MG, 1X/DAY
     Route: 048
     Dates: start: 2010
  8. AMLODIPINE BESILATE [Suspect]
     Indication: HYPERTENSION
     Dosage: 5 MG, 1X/DAY
     Route: 048
     Dates: start: 201302, end: 20130326
  9. CIPRO [Suspect]
     Indication: LOCALISED INFECTION
     Dosage: UNK
  10. INSULIN [Concomitant]
     Indication: DIABETES MELLITUS
     Dosage: UNK
  11. ECOTRIN [Concomitant]
     Indication: CARDIOVASCULAR EVENT PROPHYLAXIS
     Dosage: 325 MG, 1X/DAY
     Route: 048
  12. HUMULIN 70/30 [Concomitant]
     Indication: TYPE 2 DIABETES MELLITUS
     Dosage: UNK

REACTIONS (18)
  - Carotid artery occlusion [Recovered/Resolved]
  - Transient ischaemic attack [Recovered/Resolved]
  - Abdominal pain upper [Recovered/Resolved]
  - Diarrhoea [Recovered/Resolved]
  - Hypotension [Recovered/Resolved]
  - Hypertension [Recovered/Resolved]
  - Hypersensitivity [Recovered/Resolved]
  - Heart rate decreased [Recovered/Resolved]
  - Wound [Recovered/Resolved]
  - Staphylococcal infection [Recovered/Resolved]
  - Blood pressure fluctuation [Unknown]
  - Prescribed overdose [Unknown]
  - Localised infection [Unknown]
  - Blood creatinine increased [Unknown]
  - Headache [Recovered/Resolved]
  - Eye haemorrhage [Recovered/Resolved]
  - Tremor [Unknown]
  - Heart rate increased [Recovered/Resolved]
